FAERS Safety Report 5006516-1 (Version None)
Quarter: 2006Q2

REPORT INFORMATION
  Report Type: 
  Country: None (occurrence: None)
  Receive Date: 20060516
  Receipt Date: 20060427
  Transmission Date: 20061013
  Serious: Yes (Death)
  Sender: FDA-Public Use
  Company Number: JP200605001803

PATIENT
  Age: 14 Year
  Sex: Female

DRUGS (1)
  1. SOMATROPIN (SOMATROPIN UNKNOWN FORMULATION) UNKNOWN [Suspect]
     Indication: PRADER-WILLI SYNDROME

REACTIONS (1)
  - DROWNING [None]
